FAERS Safety Report 6738622-5 (Version None)
Quarter: 2010Q2

REPORT INFORMATION
  Report Type: 
  Country: None (occurrence: None)
  Receive Date: 20100524
  Receipt Date: 20100512
  Transmission Date: 20101027
  Serious: Yes (Hospitalization)
  Sender: FDA-Public Use
  Company Number: JP-PFIZER INC-2010060877

PATIENT
  Age: 79 Year
  Sex: Male
  Weight: 47.5 kg

DRUGS (11)
  1. SILDENAFIL CITRATE [Suspect]
     Indication: PULMONARY ARTERIAL HYPERTENSION
     Dosage: 20 MG, 3X/DAY
     Route: 048
     Dates: start: 20100219, end: 20100225
  2. SILDENAFIL CITRATE [Suspect]
     Indication: TUBERCULOSIS
  3. TAKEPRON [Concomitant]
     Dosage: UNK
     Route: 048
  4. CASODEX [Concomitant]
     Dosage: UNK
     Route: 048
  5. HARNAL [Concomitant]
     Dosage: UNK
     Route: 048
  6. MARZULENE S [Concomitant]
     Dosage: UNK
     Route: 048
  7. MAGNESIUM OXIDE [Concomitant]
     Dosage: UNK
     Route: 048
  8. URSO 250 [Concomitant]
     Dosage: UNK
     Route: 048
  9. ETIZOLAM [Concomitant]
     Dosage: UNK
     Route: 048
  10. LEUPLIN [Concomitant]
     Dosage: UNK
     Route: 058
  11. LASIX [Concomitant]
     Dosage: UNK
     Route: 048

REACTIONS (1)
  - CARDIAC FAILURE [None]
